FAERS Safety Report 20012567 (Version 4)
Quarter: 2022Q1

REPORT INFORMATION
  Report Type: Report from Study
  Country: CA (occurrence: CA)
  Receive Date: 20211029
  Receipt Date: 20220118
  Transmission Date: 20220423
  Serious: Yes (Life-Threatening)
  Sender: FDA-Public Use
  Company Number: CA-OTSUKA-2021_036940

PATIENT
  Sex: Male

DRUGS (2)
  1. ARIPIPRAZOLE [Suspect]
     Active Substance: ARIPIPRAZOLE
     Indication: Product used for unknown indication
     Dosage: 400 MG, Q4 WEEKS
     Route: 030
  2. ARIPIPRAZOLE [Suspect]
     Active Substance: ARIPIPRAZOLE
     Dosage: 300 MG, Q4 WEEKS
     Route: 030
     Dates: start: 20211108

REACTIONS (6)
  - Hepatic cancer [Unknown]
  - Peripheral swelling [Unknown]
  - Jaundice [Unknown]
  - Oedema peripheral [Unknown]
  - Weight decreased [Unknown]
  - Asthenia [Unknown]
